FAERS Safety Report 9172172 (Version 1)
Quarter: 2013Q1

REPORT INFORMATION
  Report Type: Other
  Country: US (occurrence: US)
  Receive Date: 20130319
  Receipt Date: 20130319
  Transmission Date: 20140127
  Serious: Yes (Life-Threatening, Hospitalization, Other)
  Sender: FDA-Public Use
  Company Number: US-VERTEX PHARMACEUTICALS INC.-2013-003641

PATIENT
  Age: 37 Year
  Sex: Male
  Weight: 83.9 kg

DRUGS (4)
  1. INCIVEK [Suspect]
     Indication: HEPATITIS C
     Dosage: 750 MG, UNK
     Route: 048
     Dates: start: 20121001, end: 20121214
  2. INCIVEK [Suspect]
     Dosage: 600 MG, UNK
     Route: 048
     Dates: start: 20121001, end: 20121217
  3. PEGASYS [Suspect]
  4. RIBAVIRIN [Suspect]

REACTIONS (12)
  - Dehydration [Unknown]
  - Abdominal pain [Unknown]
  - Disturbance in attention [Not Recovered/Not Resolved]
  - Mood altered [Not Recovered/Not Resolved]
  - Feeling jittery [Not Recovered/Not Resolved]
  - Incoherent [Not Recovered/Not Resolved]
  - Arthralgia [Not Recovered/Not Resolved]
  - Back pain [Not Recovered/Not Resolved]
  - Muscle spasms [Not Recovered/Not Resolved]
  - Fatigue [Not Recovered/Not Resolved]
  - Vomiting [Not Recovered/Not Resolved]
  - Pruritus [Unknown]
